FAERS Safety Report 16773645 (Version 1)
Quarter: 2019Q3

REPORT INFORMATION
  Report Type: Spontaneous
  Country: CA (occurrence: CA)
  Receive Date: 20190904
  Receipt Date: 20190904
  Transmission Date: 20191005
  Serious: Yes (Other)
  Sender: FDA-Public Use
  Company Number: CA-HLSUS-2019-CA-001024

PATIENT
  Sex: Male

DRUGS (20)
  1. SAPHRIS [Concomitant]
     Active Substance: ASENAPINE MALEATE
  2. THIORIDAZINE [Concomitant]
     Active Substance: THIORIDAZINE
  3. LITHIUM. [Suspect]
     Active Substance: LITHIUM
     Indication: AFFECTIVE DISORDER
  4. AMISULPRIDE [Concomitant]
     Active Substance: AMISULPRIDE
  5. HALOPERIDOL. [Concomitant]
     Active Substance: HALOPERIDOL
  6. LOXAPINE. [Concomitant]
     Active Substance: LOXAPINE
  7. RISPERIDONE. [Suspect]
     Active Substance: RISPERIDONE
     Indication: PSYCHOTIC DISORDER
  8. OLANZAPINE. [Suspect]
     Active Substance: OLANZAPINE
     Indication: PSYCHOTIC DISORDER
  9. FLUOXETINE [Concomitant]
     Active Substance: FLUOXETINE HYDROCHLORIDE
  10. ABILIFY [Concomitant]
     Active Substance: ARIPIPRAZOLE
  11. FLUPENTIXOL [Concomitant]
     Active Substance: FLUPENTIXOL
  12. QUETIAPINE. [Concomitant]
     Active Substance: QUETIAPINE
  13. CLOMIPRAMINE [Concomitant]
     Active Substance: CLOMIPRAMINE
  14. GABAPENTIN. [Concomitant]
     Active Substance: GABAPENTIN
  15. PERPHENAZINE. [Concomitant]
     Active Substance: PERPHENAZINE
  16. TRIFLUOPERAZINE [Concomitant]
     Active Substance: TRIFLUOPERAZINE HYDROCHLORIDE
  17. ZIPRASIDONE HYDROCHLORIDE. [Concomitant]
     Active Substance: ZIPRASIDONE HYDROCHLORIDE
  18. VALPROATE [Concomitant]
     Active Substance: VALPROIC ACID
  19. CITALOPRAM [Concomitant]
     Active Substance: CITALOPRAM HYDROBROMIDE
  20. CLOZAPINE. [Suspect]
     Active Substance: CLOZAPINE
     Indication: PSYCHOTIC DISORDER

REACTIONS (6)
  - Dyslipidaemia [Unknown]
  - Hypertension [Unknown]
  - Leukopenia [Unknown]
  - Obesity [Unknown]
  - Drug ineffective [Unknown]
  - Obsessive-compulsive disorder [Unknown]
